FAERS Safety Report 4478232-6 (Version None)
Quarter: 2004Q4

REPORT INFORMATION
  Report Type: 
  Country: None (occurrence: None)
  Receive Date: 20041018
  Receipt Date: 20041018
  Transmission Date: 20050328
  Serious: Yes (Hospitalization, Other)
  Sender: FDA-Public Use
  Company Number: None

PATIENT
  Age: 76 Year
  Sex: Male

DRUGS (7)
  1. AMIODARONE [Suspect]
     Indication: ATRIAL FIBRILLATION
     Dosage: 400 MG QD
     Dates: start: 20030630
  2. ASPIRIN [Concomitant]
  3. SIMVASTATIN [Concomitant]
  4. METFORMIN HCL [Concomitant]
  5. LASIX [Concomitant]
  6. FLEXERIL [Concomitant]
  7. LISINOPRIL [Concomitant]

REACTIONS (3)
  - CARDIAC FAILURE [None]
  - DYSPNOEA [None]
  - PULMONARY FIBROSIS [None]
